FAERS Safety Report 18818750 (Version 1)
Quarter: 2021Q1

REPORT INFORMATION
  Report Type: Spontaneous
  Country: DK (occurrence: DK)
  Receive Date: 20210201
  Receipt Date: 20210201
  Transmission Date: 20210419
  Serious: Yes (Other)
  Sender: FDA-Public Use
  Company Number: DK-OTSUKA-2021_002522

PATIENT
  Age: 34 Year
  Sex: Female

DRUGS (6)
  1. ZYPREXA [Suspect]
     Active Substance: OLANZAPINE
     Dosage: 30 MG, QD
     Route: 048
     Dates: start: 2006
  2. LITAREX (LITHIUM CITRATE) [Suspect]
     Active Substance: LITHIUM CITRATE
     Indication: BIPOLAR DISORDER
     Dosage: 24 MMOL, QD
     Route: 048
     Dates: start: 2006
  3. ABILIFY [Suspect]
     Active Substance: ARIPIPRAZOLE
     Indication: BIPOLAR DISORDER
     Dosage: 15 MG, QD
     Route: 048
     Dates: start: 2006
  4. CISORDINOL [Suspect]
     Active Substance: ZUCLOPENTHIXOL
     Indication: BIPOLAR DISORDER
     Dosage: 6 MG, QD
     Route: 048
     Dates: start: 2006
  5. ZYPREXA [Suspect]
     Active Substance: OLANZAPINE
     Indication: BIPOLAR DISORDER
     Dosage: 10 MG, AS NECESSARY
     Route: 048
     Dates: start: 2006
  6. DELEPSINE [Suspect]
     Active Substance: VALPROATE SODIUM
     Indication: BIPOLAR DISORDER
     Dosage: 1200 MG, QD
     Route: 048
     Dates: start: 2006

REACTIONS (8)
  - Fluid retention [Not Recovered/Not Resolved]
  - Tremor [Not Recovered/Not Resolved]
  - Arthralgia [Not Recovered/Not Resolved]
  - Weight increased [Not Recovered/Not Resolved]
  - Peripheral swelling [Not Recovered/Not Resolved]
  - Joint swelling [Not Recovered/Not Resolved]
  - Pulmonary oedema [Not Recovered/Not Resolved]
  - Muscle spasms [Not Recovered/Not Resolved]

NARRATIVE: CASE EVENT DATE: 2006
